FAERS Safety Report 9310469 (Version 2)
Quarter: 2013Q2

REPORT INFORMATION
  Report Type: Spontaneous
  Country: FR (occurrence: FR)
  Receive Date: 20130527
  Receipt Date: 20130529
  Transmission Date: 20140414
  Serious: Yes (Other)
  Sender: FDA-Public Use
  Company Number: FR-AMGEN-FRASP2013036180

PATIENT
  Age: 57 Year
  Sex: Female

DRUGS (5)
  1. NEULASTA [Suspect]
     Indication: NEUTROPENIA
     Dosage: 6 MG, UNK
     Route: 058
     Dates: start: 20130306
  2. FLUOROURACIL [Concomitant]
     Indication: BREAST CANCER FEMALE
     Dosage: UNK
  3. EPIRUBICIN [Concomitant]
     Indication: BREAST CANCER FEMALE
     Dosage: UNK
  4. CYCLOPHOSPHAMIDE [Concomitant]
     Indication: BREAST CANCER FEMALE
     Dosage: UNK
  5. TAXOTERE [Concomitant]
     Indication: BREAST CANCER FEMALE
     Dosage: UNK
     Dates: start: 20130304

REACTIONS (2)
  - Dyspnoea [Recovered/Resolved]
  - Rash [Recovered/Resolved]
